FAERS Safety Report 4795817-8 (Version None)
Quarter: 2005Q4

REPORT INFORMATION
  Report Type: 
  Country: None (occurrence: None)
  Receive Date: 20051007
  Receipt Date: 20050924
  Transmission Date: 20060501
  Serious: Yes (Other)
  Sender: FDA-Public Use
  Company Number: 2005132650

PATIENT
  Age: 2 Year
  Sex: Male
  Weight: 18.1439 kg

DRUGS (1)
  1. INFANT'S PEDIACARE DECONGESTANT (PSEUDOEPHEDRINE) [Suspect]
     Indication: ACCIDENTAL EXPOSURE
     Dosage: 8 DOSES (ABOUT 12 ML) ONCE; ORAL
     Route: 048
     Dates: start: 20050924, end: 20050924

REACTIONS (2)
  - ACCIDENTAL DRUG INTAKE BY CHILD [None]
  - NAUSEA [None]
